FAERS Safety Report 5021086-X (Version None)
Quarter: 2006Q2

REPORT INFORMATION
  Report Type: 
  Country: None (occurrence: None)
  Receive Date: 20060608
  Receipt Date: 20060517
  Transmission Date: 20061013
  Serious: Yes (Other)
  Sender: FDA-Public Use
  Company Number: JP-AVENTIS-200611556JP

PATIENT
  Age: 68 Year
  Sex: Male

DRUGS (4)
  1. DAONIL [Suspect]
     Indication: DIABETES MELLITUS
  2. CLARITHROMYCIN [Suspect]
     Indication: HELICOBACTER INFECTION
     Dates: start: 20031206
  3. AMOXICILLIN [Concomitant]
     Indication: HELICOBACTER INFECTION
     Dates: start: 20031206
  4. OMEPRAZON [Concomitant]
     Indication: HELICOBACTER INFECTION
     Dates: start: 20031206

REACTIONS (2)
  - DRUG INTERACTION [None]
  - HYPOGLYCAEMIA [None]
